FAERS Safety Report 25764326 (Version 1)
Quarter: 2025Q3

REPORT INFORMATION
  Report Type: Spontaneous
  Country: US (occurrence: US)
  Receive Date: 20250905
  Receipt Date: 20250905
  Transmission Date: 20251020
  Serious: No
  Sender: DOMPE FARMACEUTICI
  Company Number: US-FARMAPROD-202412-4325

PATIENT
  Sex: Female
  Weight: 53.52 kg

DRUGS (31)
  1. OXERVATE [Suspect]
     Active Substance: CENEGERMIN-BKBJ
     Indication: Neurotrophic keratopathy
     Route: 047
     Dates: start: 20241220
  2. ROSUVASTATIN CALCIUM [Concomitant]
     Active Substance: ROSUVASTATIN CALCIUM
  3. ASPIRIN [Concomitant]
     Active Substance: ASPIRIN
  4. HYDROCORTISONE\NEOMYCIN\POLYMYXIN [Concomitant]
     Active Substance: HYDROCORTISONE\NEOMYCIN\POLYMYXIN
  5. XIIDRA [Concomitant]
     Active Substance: LIFITEGRAST
  6. PROLIA [Concomitant]
     Active Substance: DENOSUMAB
  7. LIDOCAINE HYDROCHLORIDE [Concomitant]
     Active Substance: LIDOCAINE HYDROCHLORIDE
  8. OFLOXACIN [Concomitant]
     Active Substance: OFLOXACIN
  9. EYLEA [Concomitant]
     Active Substance: AFLIBERCEPT
  10. LYSINE [Concomitant]
     Active Substance: LYSINE
  11. VITAMIN B12 [Concomitant]
     Active Substance: CYANOCOBALAMIN
  12. METOPROLOL SUCCINATE [Concomitant]
     Active Substance: METOPROLOL SUCCINATE
  13. TRAMADOL HCL [Concomitant]
     Active Substance: TRAMADOL HYDROCHLORIDE
  14. DICLOFENAC SODIUM [Concomitant]
     Active Substance: DICLOFENAC SODIUM
  15. VALACYCLOVIR [Concomitant]
     Active Substance: VALACYCLOVIR HYDROCHLORIDE
  16. LATANOPROST [Concomitant]
     Active Substance: LATANOPROST
  17. TRAMADOL HCL [Concomitant]
     Active Substance: TRAMADOL HYDROCHLORIDE
  18. FAMOTIDINE [Concomitant]
     Active Substance: FAMOTIDINE
  19. NITROGLYCERIN [Concomitant]
     Active Substance: NITROGLYCERIN
  20. ISOSORBIDE MONONITRATE [Concomitant]
     Active Substance: ISOSORBIDE MONONITRATE
  21. METOPROLOL TARTRATE [Concomitant]
     Active Substance: METOPROLOL TARTRATE
  22. ACYCLOVIR [Concomitant]
     Active Substance: ACYCLOVIR
  23. DEXILANT [Concomitant]
     Active Substance: DEXLANSOPRAZOLE
  24. NITROSTAT [Concomitant]
     Active Substance: NITROGLYCERIN
  25. CETIRIZINE HCL [Concomitant]
     Active Substance: CETIRIZINE HYDROCHLORIDE
  26. BETAMETHASONE DIPROPIONATE [Concomitant]
     Active Substance: BETAMETHASONE DIPROPIONATE
  27. OXYCODONE HYDROCHLORIDE [Concomitant]
     Active Substance: OXYCODONE HYDROCHLORIDE
  28. PANTOPRAZOLE SODIUM [Concomitant]
     Active Substance: PANTOPRAZOLE SODIUM
  29. IBANDRONATE SODIUM [Concomitant]
     Active Substance: IBANDRONATE SODIUM
  30. IPRATROPIUM BROMIDE [Concomitant]
     Active Substance: IPRATROPIUM BROMIDE
  31. BLOOD SERUM TEARS [Concomitant]

REACTIONS (2)
  - Eye pain [Unknown]
  - Nasopharyngitis [Recovering/Resolving]
